FAERS Safety Report 13116775 (Version 1)
Quarter: 2017Q1

REPORT INFORMATION
  Report Type: Report from Study
  Country: BR (occurrence: BR)
  Receive Date: 20170116
  Receipt Date: 20170116
  Transmission Date: 20170428
  Serious: Yes (Death, Hospitalization, Other)
  Sender: FDA-Public Use
  Company Number: BR-ALEXION PHARMACEUTICALS INC-A201405121

PATIENT
  Age: 38 Year
  Sex: Male

DRUGS (3)
  1. SOLIRIS [Suspect]
     Active Substance: ECULIZUMAB
     Indication: PAROXYSMAL NOCTURNAL HAEMOGLOBINURIA
     Dosage: 900 MG, UNK
     Route: 042
     Dates: start: 20131113, end: 20140205
  2. PEN V                              /00001801/ [Concomitant]
     Active Substance: PENICILLIN V
     Indication: PRODUCT USED FOR UNKNOWN INDICATION
     Dosage: UNK
     Route: 048
  3. SOLIRIS [Suspect]
     Active Substance: ECULIZUMAB
     Dosage: 1200 MG, UNK
     Route: 042
     Dates: start: 20140205, end: 20141015

REACTIONS (13)
  - Arterial disorder [Unknown]
  - Mydriasis [Unknown]
  - Headache [Unknown]
  - Anaemia [Unknown]
  - Hemiparesis [Unknown]
  - Meningitis [Unknown]
  - Vomiting [Unknown]
  - Pain [Unknown]
  - Ischaemic stroke [Fatal]
  - Malaise [Unknown]
  - Haemorrhagic transformation stroke [Unknown]
  - Haemolysis [Unknown]
  - Incorrect dose administered [Unknown]

NARRATIVE: CASE EVENT DATE: 2014
